FAERS Safety Report 13178452 (Version 1)
Quarter: 2017Q1

REPORT INFORMATION
  Report Type: Spontaneous
  Country: US (occurrence: US)
  Receive Date: 20170202
  Receipt Date: 20170202
  Transmission Date: 20170428
  Serious: Yes (Other)
  Sender: FDA-Public Use
  Company Number: US-WEST-WARD PHARMACEUTICALS CORP.-US-H14001-17-00146

PATIENT
  Age: 40 Year
  Sex: Female

DRUGS (2)
  1. MONTELUKAST [Suspect]
     Active Substance: MONTELUKAST SODIUM
     Indication: ASTHMA
     Route: 048
     Dates: start: 2015, end: 2015
  2. ASPARTAME [Suspect]
     Active Substance: ASPARTAME
     Indication: PRODUCT USED FOR UNKNOWN INDICATION
     Route: 048
     Dates: start: 2015, end: 2015

REACTIONS (7)
  - Reaction to drug excipients [Recovered/Resolved]
  - Walking disability [Unknown]
  - Fall [Recovered/Resolved]
  - Hemiparesis [Recovered/Resolved]
  - Hypersensitivity [Recovered/Resolved]
  - Balance disorder [Recovered/Resolved]
  - Migraine with aura [Recovered/Resolved]

NARRATIVE: CASE EVENT DATE: 2015
